FAERS Safety Report 9607282 (Version 2)
Quarter: 2013Q4

REPORT INFORMATION
  Report Type: Spontaneous
  Country: US (occurrence: US)
  Receive Date: 20131009
  Receipt Date: 20131009
  Transmission Date: 20140711
  Serious: Yes (Other)
  Sender: FDA-Public Use
  Company Number: US-BRISTOL-MYERS SQUIBB COMPANY-17332511

PATIENT
  Age: 56 Year
  Sex: Female
  Weight: 104.31 kg

DRUGS (11)
  1. ABATACEPT SUBQ INJECTION 125MG/ML [Suspect]
     Indication: RHEUMATOID ARTHRITIS
     Route: 058
     Dates: start: 201212
  2. ADVAIR [Concomitant]
  3. DIOVAN [Concomitant]
     Dosage: TAB 160/25MG
  4. DUONEB [Concomitant]
     Dosage: SOLN
  5. LIPITOR [Concomitant]
     Dosage: 10MG TAB
  6. NASONEX [Concomitant]
     Dosage: SPR 5OMCG/AC
  7. PREDNISONE [Concomitant]
     Dosage: TAB 10 MG
  8. PROAIR HFA [Concomitant]
  9. SPIRIVA [Concomitant]
     Dosage: CAP HANDLER
  10. HYDROCHLOROTHIAZIDE [Concomitant]
  11. ZYRTEC [Concomitant]
     Dosage: ZYRTEC CLAW 10MG

REACTIONS (4)
  - Foot fracture [Unknown]
  - Rhinorrhoea [Unknown]
  - Cough [Recovering/Resolving]
  - Asthma [Recovering/Resolving]
